FAERS Safety Report 5128892-1 (Version None)
Quarter: 2006Q4

REPORT INFORMATION
  Report Type: 
  Country: None (occurrence: None)
  Receive Date: 20061017
  Receipt Date: 20060616
  Transmission Date: 20070319
  Serious: No
  Sender: FDA-Public Use
  Company Number: US-GLAXOSMITHKLINE-A0609518A

PATIENT
  Age: 10 Month
  Sex: Male

DRUGS (4)
  1. CEFTIN [Suspect]
     Indication: OTITIS MEDIA ACUTE
     Dosage: 125MG TWICE PER DAY
     Route: 048
     Dates: start: 20060616
  2. ZYRTEC [Concomitant]
  3. TYLENOL [Concomitant]
  4. MOTRIN [Concomitant]

REACTIONS (4)
  - CONDITION AGGRAVATED [None]
  - COUGH [None]
  - DYSGEUSIA [None]
  - RETCHING [None]
